FAERS Safety Report 20701290 (Version 2)
Quarter: 2022Q2

REPORT INFORMATION
  Report Type: Report from Study
  Country: FR (occurrence: FR)
  Receive Date: 20220412
  Receipt Date: 20220419
  Transmission Date: 20220720
  Serious: Yes (Death)
  Sender: FDA-Public Use
  Company Number: FR-DSRSG-DS8201AU206_33032009_000002

PATIENT
  Age: 9 Decade
  Sex: Female
  Weight: 62 kg

DRUGS (21)
  1. TRASTUZUMAB DERUXTECAN [Suspect]
     Active Substance: TRASTUZUMAB DERUXTECAN
     Indication: HER2 mutant non-small cell lung cancer
     Dosage: 6.4 MG/KG, ONCE EVERY 3 WK
     Route: 042
     Dates: start: 20211214, end: 20211214
  2. TRASTUZUMAB DERUXTECAN [Suspect]
     Active Substance: TRASTUZUMAB DERUXTECAN
     Dosage: 5.4 MG/KG, ONCE EVERY 3 WK
     Route: 042
     Dates: start: 20220107, end: 20220107
  3. TRASTUZUMAB DERUXTECAN [Suspect]
     Active Substance: TRASTUZUMAB DERUXTECAN
     Dosage: 4.4 MG/KG, ONCE EVERY 3 WK
     Route: 042
     Dates: start: 20220125, end: 20220125
  4. OXYGEN [Concomitant]
     Active Substance: OXYGEN
     Dosage: 1 OTHER
     Route: 055
     Dates: start: 20220121, end: 20220207
  5. OLANZAPINE [Concomitant]
     Active Substance: OLANZAPINE
     Dosage: 1 TABLET
     Route: 048
     Dates: start: 20211220
  6. OXYGEN [Concomitant]
     Active Substance: OXYGEN
     Dosage: 2 OTHER
     Route: 055
     Dates: start: 20220207, end: 20220217
  7. CEFOTAXIME [Concomitant]
     Active Substance: CEFOTAXIME SODIUM
     Dosage: 1 OTHER
     Route: 048
     Dates: start: 20220203, end: 20220206
  8. AUGMENTIN [Concomitant]
     Active Substance: AMOXICILLIN\CLAVULANATE POTASSIUM
     Dosage: 1 OTHER
     Route: 048
     Dates: start: 20220203, end: 20220207
  9. OXYGEN [Concomitant]
     Active Substance: OXYGEN
     Dosage: 15 OTHER
     Route: 055
     Dates: start: 20220217, end: 20220221
  10. PIPERACILLIN SODIUM\TAZOBACTAM SODIUM [Concomitant]
     Active Substance: PIPERACILLIN SODIUM\TAZOBACTAM SODIUM
     Dosage: 4 OTHER
     Route: 048
     Dates: start: 20220217, end: 20220221
  11. FUROSEMIDE [Concomitant]
     Active Substance: FUROSEMIDE
     Dosage: 60 OTHER
     Route: 048
     Dates: start: 20220217, end: 20220221
  12. CTC (ANTI-HYPERTENSIVES) 2MG/KG/J [Concomitant]
     Dosage: 120 OTHER
     Route: 048
     Dates: start: 20220217, end: 20220221
  13. MIDAZOLAM [Concomitant]
     Active Substance: MIDAZOLAM
     Dosage: 0.5 OTHER
     Route: 055
     Dates: start: 20220217, end: 20220221
  14. MORPHINE [Concomitant]
     Active Substance: MORPHINE
     Dosage: 1 OTHER
     Route: 055
     Dates: start: 20220217, end: 20220221
  15. LANSOPRAZOLE [Concomitant]
     Active Substance: LANSOPRAZOLE
     Dosage: 1 TABLET
     Route: 048
     Dates: start: 20211230, end: 20220216
  16. PREDNISONE [Concomitant]
     Active Substance: PREDNISONE
     Dosage: 1 TABLET
     Route: 048
     Dates: start: 20220117, end: 20220124
  17. PREDNISONE [Concomitant]
     Active Substance: PREDNISONE
     Dosage: 1 TABLET
     Route: 048
     Dates: start: 20210124, end: 20220131
  18. EYLEA [Concomitant]
     Active Substance: AFLIBERCEPT
     Indication: Cataract
     Dosage: 1 DROP
     Route: 031
     Dates: start: 20211202
  19. COSOPT [Concomitant]
     Active Substance: DORZOLAMIDE HYDROCHLORIDE\TIMOLOL MALEATE
     Indication: Cataract
     Dosage: 1 DROP
     Route: 061
     Dates: start: 2020
  20. LATANOPROST [Concomitant]
     Active Substance: LATANOPROST
     Indication: Cataract
     Dosage: 1 DROP
     Route: 061
     Dates: start: 20211214
  21. FORTIMEL EXTRA [BIOTIN;CALCIUM PANTOTHENATE;CARBOHYDRATES NOS;CHOLINE [Concomitant]
     Dosage: 200 OTHER
     Route: 048
     Dates: start: 20220207

REACTIONS (1)
  - Interstitial lung disease [Fatal]

NARRATIVE: CASE EVENT DATE: 20220217
